FAERS Safety Report 10978780 (Version 2)
Quarter: 2015Q2

REPORT INFORMATION
  Report Type: Spontaneous
  Country: US (occurrence: US)
  Receive Date: 20150402
  Receipt Date: 20150520
  Transmission Date: 20150821
  Serious: No
  Sender: FDA-Public Use
  Company Number: US-TEVA-551236USA

PATIENT
  Age: 63 Year
  Sex: Female

DRUGS (7)
  1. GABAPENTIN. [Concomitant]
     Active Substance: GABAPENTIN
  2. LEXAPRO [Concomitant]
     Active Substance: ESCITALOPRAM OXALATE
  3. LEVETIRACETAM. [Concomitant]
     Active Substance: LEVETIRACETAM
  4. NAMENDA [Concomitant]
     Active Substance: MEMANTINE HYDROCHLORIDE
  5. BACLOFEN. [Concomitant]
     Active Substance: BACLOFEN
  6. COPAXONE [Suspect]
     Active Substance: GLATIRAMER ACETATE
     Indication: MULTIPLE SCLEROSIS
     Route: 058
     Dates: start: 20150114
  7. WELCHOL [Concomitant]
     Active Substance: COLESEVELAM HYDROCHLORIDE

REACTIONS (1)
  - Chills [Unknown]

NARRATIVE: CASE EVENT DATE: 201502
